FAERS Safety Report 8187344-5 (Version None)
Quarter: 2012Q1

REPORT INFORMATION
  Report Type: 
  Country: None (occurrence: None)
  Receive Date: 20120306
  Receipt Date: 20120227
  Transmission Date: 20120608
  Serious: Yes (Hospitalization)
  Sender: FDA-Public Use
  Company Number: US-JNJFOC-20120213573

PATIENT
  Sex: Female
  Weight: 35.3 kg

DRUGS (4)
  1. REMICADE [Suspect]
     Indication: COLITIS ULCERATIVE
     Route: 042
     Dates: start: 20120119
  2. PREDNISONE TAB [Concomitant]
  3. MERCAPTOPURINE [Concomitant]
  4. REMICADE [Suspect]
     Route: 042
     Dates: start: 20090919

REACTIONS (1)
  - COLITIS ULCERATIVE [None]
